FAERS Safety Report 19592821 (Version 1)
Quarter: 2021Q3

REPORT INFORMATION
  Report Type: Spontaneous
  Country: US (occurrence: US)
  Receive Date: 20210721
  Receipt Date: 20210721
  Transmission Date: 20211014
  Serious: No
  Sender: FDA-Public Use
  Company Number: None

PATIENT
  Sex: Female

DRUGS (1)
  1. C?TREPROSTINIL (3ML)RM [Suspect]
     Active Substance: TREPROSTINIL
     Indication: PULMONARY ARTERIAL HYPERTENSION
     Dosage: ?          OTHER DOSE:15.69 NG/KG/MIN;OTHER FREQUENCY:32 UL/HR;?
     Route: 058
     Dates: start: 20210119

REACTIONS (3)
  - Diarrhoea [None]
  - Pain in extremity [None]
  - Neuropathy peripheral [None]
